FAERS Safety Report 8809804 (Version 3)
Quarter: 2012Q4

REPORT INFORMATION
  Report Type: 
  Country: DE (occurrence: JP)
  Receive Date: 20120926
  Receipt Date: 20121029
  Transmission Date: 20130627
  Serious: Yes (Hospitalization)
  Sender: FDA-Public Use
  Company Number: JP-FRI-1000038934

PATIENT
  Age: 72 Year
  Sex: Female

DRUGS (6)
  1. MEMANTINE [Suspect]
     Indication: DEMENTIA ALZHEIMER^S TYPE
     Dosage: 5mg
     Route: 048
     Dates: start: 20120706, end: 20120712
  2. MEMANTINE [Suspect]
     Dosage: 10 mg
     Route: 048
     Dates: start: 20120713, end: 20120719
  3. MEMANTINE [Suspect]
     Dosage: 15 mg
     Route: 048
     Dates: start: 20120720, end: 20120726
  4. MEMANTINE [Suspect]
     Indication: DEMENTIA ALZHEIMER^S TYPE
     Dosage: 20 mg
     Route: 048
     Dates: start: 20120727, end: 20120830
  5. REMINYL [Concomitant]
     Indication: DEMENTIA ALZHEIMER^S TYPE
     Dosage: 48 mg
     Route: 048
     Dates: start: 20120315
  6. YOKUKAN-SAN [Concomitant]
     Indication: DEMENTIA ALZHEIMER^S TYPE
     Dosage: 22.5 g
     Route: 048

REACTIONS (2)
  - Rhabdomyolysis [Recovered/Resolved]
  - Pyrexia [Recovered/Resolved]
